FAERS Safety Report 15401098 (Version 1)
Quarter: 2018Q3

REPORT INFORMATION
  Report Type: Spontaneous
  Country: US (occurrence: US)
  Receive Date: 20180919
  Receipt Date: 20180919
  Transmission Date: 20181010
  Serious: Yes (Other)
  Sender: FDA-Public Use
  Company Number: US-ASTRAZENECA-2018SF18259

PATIENT
  Age: 77 Year
  Sex: Female

DRUGS (2)
  1. BRILINTA [Suspect]
     Active Substance: TICAGRELOR
     Indication: COMPLICATION ASSOCIATED WITH DEVICE
     Route: 048
  2. BABY ASPIRIN [Concomitant]
     Active Substance: ASPIRIN
     Indication: OFF LABEL USE
     Dosage: 81.0MG UNKNOWN
     Route: 065

REACTIONS (1)
  - Haemoglobin decreased [Recovered/Resolved]
